FAERS Safety Report 7800001-7 (Version None)
Quarter: 2011Q4

REPORT INFORMATION
  Report Type: 
  Country: None (occurrence: None)
  Receive Date: 20111006
  Receipt Date: 20110928
  Transmission Date: 20120403
  Serious: Yes (Hospitalization)
  Sender: FDA-Public Use
  Company Number: IT-ASTRAZENECA-2011SE58316

PATIENT
  Age: 18973 Day
  Sex: Female

DRUGS (1)
  1. SEROQUEL [Suspect]
     Indication: DRUG ADMINISTRATION ERROR
     Dosage: 300 MG FILM-COATED TABLETS, 1200 MG ONCE/SINGLE ADMINISTRATION
     Route: 048
     Dates: start: 20110624, end: 20110624

REACTIONS (1)
  - ACCIDENTAL EXPOSURE [None]
